FAERS Safety Report 12809123 (Version 1)
Quarter: 2016Q4

REPORT INFORMATION
  Report Type: Spontaneous
  Country: US (occurrence: US)
  Receive Date: 20161004
  Receipt Date: 20161004
  Transmission Date: 20170207
  Serious: Yes (Other)
  Sender: FDA-Public Use
  Company Number: US-INTERNATIONAL MEDICATION SYSTEMS, LIMITED-1057978

PATIENT
  Age: 87 Year
  Sex: Female
  Weight: 78 kg

DRUGS (1)
  1. LIDOCAINE HYDROCHLORIDE. [Suspect]
     Active Substance: LIDOCAINE HYDROCHLORIDE
     Indication: HIP ARTHROPLASTY
     Dates: start: 20160628, end: 20160628

REACTIONS (4)
  - Removal of foreign body from respiratory tract [Recovered/Resolved]
  - Foreign body [Recovered/Resolved]
  - Endotracheal intubation complication [None]
  - Device breakage [None]

NARRATIVE: CASE EVENT DATE: 20160628
